FAERS Safety Report 25476531 (Version 1)
Quarter: 2025Q2

REPORT INFORMATION
  Report Type: Spontaneous
  Country: GB (occurrence: GB)
  Receive Date: 20250625
  Receipt Date: 20250625
  Transmission Date: 20250716
  Serious: Yes (Life-Threatening, Hospitalization, Other)
  Sender: MARKSANS PHARMA LIMITED
  Company Number: GB-MARKSANS PHARMA LIMITED-MPL202500066

PATIENT

DRUGS (3)
  1. ACETAMINOPHEN [Suspect]
     Active Substance: ACETAMINOPHEN
     Indication: Intentional overdose
     Route: 048
  2. CODEINE [Suspect]
     Active Substance: CODEINE
     Indication: Intentional overdose
     Route: 048
  3. MIRTAZAPINE [Suspect]
     Active Substance: MIRTAZAPINE
     Indication: Intentional overdose
     Route: 048

REACTIONS (14)
  - IIIrd nerve paralysis [Recovered/Resolved]
  - Hepatic encephalopathy [Unknown]
  - Intracranial pressure increased [Unknown]
  - Brain oedema [Recovered/Resolved]
  - Neurological symptom [Recovered/Resolved]
  - Vasoplegia syndrome [Unknown]
  - Sepsis [Unknown]
  - Hyperammonaemia [Unknown]
  - Metabolic acidosis [Recovered/Resolved]
  - Coagulopathy [Unknown]
  - Hypertransaminasaemia [Recovered/Resolved]
  - Acute hepatic failure [Recovered/Resolved]
  - Pyrexia [Unknown]
  - Overdose [Unknown]
